FAERS Safety Report 6107813-9 (Version None)
Quarter: 2009Q1

REPORT INFORMATION
  Report Type: 
  Country: None (occurrence: None)
  Receive Date: 20090309
  Receipt Date: 20090304
  Transmission Date: 20090719
  Serious: Yes (Hospitalization)
  Sender: FDA-Public Use
  Company Number: B0563561A

PATIENT
  Age: 20 Year
  Sex: Male
  Weight: 60 kg

DRUGS (3)
  1. ALBENDAZOLE [Suspect]
     Indication: DRUG USE FOR UNKNOWN INDICATION
     Dates: start: 20090212
  2. MECTIZAN [Suspect]
     Indication: DRUG USE FOR UNKNOWN INDICATION
     Dates: start: 20090212
  3. PHENOBARBITAL TAB [Concomitant]
     Dosage: 100MG PER DAY
     Dates: end: 20090228

REACTIONS (8)
  - ARTHRALGIA [None]
  - CONJUNCTIVAL HYPERAEMIA [None]
  - HEADACHE [None]
  - LYMPHADENOPATHY [None]
  - ODYNOPHAGIA [None]
  - PRURITUS GENERALISED [None]
  - PYREXIA [None]
  - STEVENS-JOHNSON SYNDROME [None]
